FAERS Safety Report 25256368 (Version 4)
Quarter: 2025Q3

REPORT INFORMATION
  Report Type: Report from Study
  Country: US (occurrence: US)
  Receive Date: 20250430
  Receipt Date: 20250722
  Transmission Date: 20251020
  Serious: Yes (Hospitalization)
  Sender: JAZZ
  Company Number: US-JAZZ PHARMACEUTICALS-2025-US-005921

PATIENT
  Age: 27 Year
  Sex: Female

DRUGS (14)
  1. XYWAV [Suspect]
     Active Substance: CALCIUM OXYBATE\MAGNESIUM OXYBATE\POTASSIUM OXYBATE\SODIUM OXYBATE
     Indication: Hypersomnia
     Dosage: 4.25 GRAM, BID
     Dates: start: 20241203
  2. XYWAV [Suspect]
     Active Substance: CALCIUM OXYBATE\MAGNESIUM OXYBATE\POTASSIUM OXYBATE\SODIUM OXYBATE
     Dosage: 4.25 MILLILITER, BID
  3. XYWAV [Suspect]
     Active Substance: CALCIUM OXYBATE\MAGNESIUM OXYBATE\POTASSIUM OXYBATE\SODIUM OXYBATE
     Dates: start: 20241203, end: 20250305
  4. XYWAV [Suspect]
     Active Substance: CALCIUM OXYBATE\MAGNESIUM OXYBATE\POTASSIUM OXYBATE\SODIUM OXYBATE
     Dosage: 3 GRAM, BID
     Dates: start: 20250310
  5. XYWAV [Suspect]
     Active Substance: CALCIUM OXYBATE\MAGNESIUM OXYBATE\POTASSIUM OXYBATE\SODIUM OXYBATE
     Dosage: 4.25 GRAM, BID
  6. XYWAV [Suspect]
     Active Substance: CALCIUM OXYBATE\MAGNESIUM OXYBATE\POTASSIUM OXYBATE\SODIUM OXYBATE
     Dosage: 3.75 GRAM, BID
  7. XYWAV [Suspect]
     Active Substance: CALCIUM OXYBATE\MAGNESIUM OXYBATE\POTASSIUM OXYBATE\SODIUM OXYBATE
     Dosage: 4 GRAM, BID
  8. XYWAV [Suspect]
     Active Substance: CALCIUM OXYBATE\MAGNESIUM OXYBATE\POTASSIUM OXYBATE\SODIUM OXYBATE
     Dosage: 4.25 GRAM, BID
     Dates: start: 202501, end: 20250305
  9. CONCERTA [Suspect]
     Active Substance: METHYLPHENIDATE HYDROCHLORIDE
     Indication: Product used for unknown indication
  10. QULIPTA [Concomitant]
     Active Substance: ATOGEPANT
  11. TYLENOL [Concomitant]
     Active Substance: ACETAMINOPHEN
  12. IBUPROFEN [Concomitant]
     Active Substance: IBUPROFEN
  13. BOTOX [Concomitant]
     Active Substance: ONABOTULINUMTOXINA
     Indication: Product used for unknown indication
  14. DULOXETINE [Concomitant]
     Active Substance: DULOXETINE

REACTIONS (13)
  - Mental disorder [Recovered/Resolved]
  - Neurological symptom [Recovered/Resolved]
  - Migraine without aura [Recovered/Resolved]
  - Mania [Recovered/Resolved]
  - Insomnia [Unknown]
  - Mood altered [Recovering/Resolving]
  - Emotional distress [Recovering/Resolving]
  - Vitamin D decreased [Unknown]
  - Inflammation [Unknown]
  - Pre-existing condition improved [Unknown]
  - Drug withdrawal syndrome [Unknown]
  - Drug effect less than expected [Recovering/Resolving]
  - Intentional product use issue [Unknown]

NARRATIVE: CASE EVENT DATE: 20250301
